FAERS Safety Report 11604383 (Version 4)
Quarter: 2015Q4

REPORT INFORMATION
  Report Type: Report from Study
  Country: US (occurrence: US)
  Receive Date: 20151007
  Receipt Date: 20151120
  Transmission Date: 20160304
  Serious: Yes (Hospitalization, Other)
  Sender: FDA-Public Use
  Company Number: US-GILEAD-2015-0175610

PATIENT
  Age: 59 Year
  Sex: Female

DRUGS (14)
  1. REMODULIN [Suspect]
     Active Substance: TREPROSTINIL
     Indication: PULMONARY ARTERIAL HYPERTENSION
     Dosage: 10 NG/KG/MIN CONTINUOUS
     Route: 058
     Dates: start: 20151002, end: 20151003
  2. ADVIL [Concomitant]
     Active Substance: IBUPROFEN
  3. VITAMIN B12 [Concomitant]
     Active Substance: CYANOCOBALAMIN
  4. CALCIUM + D3                       /00944201/ [Concomitant]
     Active Substance: CALCIUM\CHOLECALCIFEROL
  5. CARVEDILOL. [Concomitant]
     Active Substance: CARVEDILOL
  6. VITAMIN D3 [Concomitant]
     Active Substance: CHOLECALCIFEROL
  7. ASPIRIN                            /00002701/ [Concomitant]
     Active Substance: ASPIRIN
  8. AMBRISENTAN [Suspect]
     Active Substance: AMBRISENTAN
     Indication: PULMONARY HYPERTENSION
     Dosage: 10 MG, QD
     Route: 065
     Dates: start: 20140324
  9. ORENITRAM [Suspect]
     Active Substance: TREPROSTINIL
     Indication: PULMONARY ARTERIAL HYPERTENSION
     Dosage: 8 MG, TID
     Route: 048
     Dates: start: 20140827
  10. OMNARIS [Concomitant]
     Active Substance: CICLESONIDE
  11. POTASSIUM [Concomitant]
     Active Substance: POTASSIUM
  12. ADCIRCA [Suspect]
     Active Substance: TADALAFIL
     Indication: PRODUCT USED FOR UNKNOWN INDICATION
     Route: 065
  13. SPIRONOLACTONE. [Concomitant]
     Active Substance: SPIRONOLACTONE
  14. LASIX [Concomitant]
     Active Substance: FUROSEMIDE

REACTIONS (3)
  - Urine output decreased [Unknown]
  - Right ventricular failure [Recovering/Resolving]
  - Hypotension [Unknown]

NARRATIVE: CASE EVENT DATE: 20151003
